FAERS Safety Report 4923044-X (Version None)
Quarter: 2006Q1

REPORT INFORMATION
  Report Type: 
  Country: None (occurrence: None)
  Receive Date: 20060125
  Receipt Date: 20050921
  Transmission Date: 20060701
  Serious: Yes (Disabling, Other)
  Sender: FDA-Public Use
  Company Number: HQWYE612623SEP05

PATIENT
  Age: 60 Year
  Sex: Male
  Weight: 63.56 kg

DRUGS (6)
  1. CORDARONE [Suspect]
     Dosage: 200 MG TABLET (DOSE AND REGIMEN), ORAL
     Route: 048
     Dates: start: 20031201, end: 20050801
  2. NORVASC [Concomitant]
  3. CORGARD [Concomitant]
  4. VALIUM [Concomitant]
  5. COUMADIN [Concomitant]
  6. POTASSIUM CHLORIDE [Concomitant]

REACTIONS (1)
  - HYPERTHYROIDISM [None]
